FAERS Safety Report 8547450-X (Version None)
Quarter: 2012Q3

REPORT INFORMATION
  Report Type: 
  Country: None (occurrence: None)
  Receive Date: 20120727
  Receipt Date: 20120417
  Transmission Date: 20120928
  Serious: No
  Sender: FDA-Public Use
  Company Number: US-ASTRAZENECA-2012SE25241

PATIENT
  Age: 43 Year
  Sex: Female

DRUGS (3)
  1. SEROQUEL [Suspect]
     Dosage: GENERIC
     Route: 048
  2. SEROQUEL [Suspect]
     Indication: DEPRESSION
     Route: 048
     Dates: start: 20111101
  3. SEROQUEL [Suspect]
     Route: 048
     Dates: start: 20111101

REACTIONS (9)
  - DRUG INEFFECTIVE [None]
  - INSOMNIA [None]
  - FEELING DRUNK [None]
  - INTENTIONAL DRUG MISUSE [None]
  - DRUG DISPENSING ERROR [None]
  - DRUG TOLERANCE DECREASED [None]
  - DEPRESSION [None]
  - MULTIPLE ALLERGIES [None]
  - HALLUCINATION, VISUAL [None]
